FAERS Safety Report 5531058-4 (Version None)
Quarter: 2007Q4

REPORT INFORMATION
  Report Type: 
  Country: None (occurrence: None)
  Receive Date: 20071130
  Receipt Date: 20071119
  Transmission Date: 20080405
  Serious: Yes (Other)
  Sender: FDA-Public Use
  Company Number: GB-PFIZER INC-2007098090

PATIENT
  Age: 66 Year
  Sex: Female

DRUGS (8)
  1. CHAMPIX [Suspect]
     Indication: SMOKING CESSATION THERAPY
     Route: 048
     Dates: start: 20070530, end: 20070709
  2. ALFUZOSIN HCL [Concomitant]
  3. ATORVASTATIN CALCIUM [Concomitant]
  4. BETAHISTINE [Concomitant]
  5. CETIRIZINE HCL [Concomitant]
  6. GABAPENTIN [Concomitant]
  7. TOLTERODINE TARTRATE [Concomitant]
  8. TRAMADOL HCL [Concomitant]

REACTIONS (1)
  - MULTIPLE SCLEROSIS [None]
